FAERS Safety Report 16757160 (Version 1)
Quarter: 2019Q3

REPORT INFORMATION
  Report Type: Other
  Country: NL (occurrence: ES)
  Receive Date: 20190829
  Receipt Date: 20190829
  Transmission Date: 20191005
  Serious: Yes (Other)
  Sender: FDA-Public Use
  Company Number: NL-KOWA-19EU002223

PATIENT

DRUGS (8)
  1. CLOPIDOGREL [CLOPIDOGREL BISULFATE] [Suspect]
     Active Substance: CLOPIDOGREL BISULFATE
     Indication: THROMBOSIS PROPHYLAXIS
     Dosage: 1 DF, QD (1 CADA 24 H)
     Route: 048
     Dates: start: 20180417
  2. EZETROL [Suspect]
     Active Substance: EZETIMIBE
     Indication: HYPERCHOLESTEROLAEMIA
     Dosage: 1 DF, QD (1 CADA 24 H.)
     Route: 048
     Dates: start: 20180604
  3. ALIPZA [Suspect]
     Active Substance: PITAVASTATIN
     Indication: HYPERCHOLESTEROLAEMIA
     Dosage: 1 DF, QD (1 PASTILLA CADA 24H)
     Route: 048
     Dates: start: 20180528
  4. NEUPRO [Suspect]
     Active Substance: ROTIGOTINE
     Indication: BACK PAIN
     Dosage: 1 DF, QD (1 PARCHE CADA 24 H.)
     Route: 062
     Dates: start: 20130506
  5. ANEUROL [DIAZEPAM;PYRIDOXINE HYDROCHLORIDE;THIAMINE HYDROCHLORIDE] [Suspect]
     Active Substance: DIAZEPAM\PYRIDOXINE\THIAMINE
     Indication: BACK PAIN
     Dosage: 1 DF, QD
     Route: 048
     Dates: start: 20130506
  6. ADIRO AP [Suspect]
     Active Substance: ASPIRIN
     Indication: THROMBOSIS PROPHYLAXIS
     Dosage: 1 DF, QD (1 CADA 24 H.)
     Route: 048
     Dates: start: 20180417
  7. BISOPROLOL NORMON [Suspect]
     Active Substance: BISOPROLOL FUMARATE
     Indication: HYPERTENSION
     Dosage: 1/2 CADA 12 H
     Route: 048
     Dates: start: 20180604
  8. ANEUROL [DIAZEPAM;PYRIDOXINE HYDROCHLORIDE;THIAMINE HYDROCHLORIDE] [Suspect]
     Active Substance: DIAZEPAM\PYRIDOXINE\THIAMINE
     Dosage: 2 DF, QD
     Route: 048

REACTIONS (12)
  - Discomfort [Not Recovered/Not Resolved]
  - Amnesia [Not Recovered/Not Resolved]
  - Depression [Not Recovered/Not Resolved]
  - Decreased appetite [Not Recovered/Not Resolved]
  - Myalgia [Not Recovered/Not Resolved]
  - Balance disorder [Not Recovered/Not Resolved]
  - Dry mouth [Not Recovered/Not Resolved]
  - Tinnitus [Not Recovered/Not Resolved]
  - Fatigue [Not Recovered/Not Resolved]
  - Cough [Not Recovered/Not Resolved]
  - Pruritus [Not Recovered/Not Resolved]
  - Insomnia [Not Recovered/Not Resolved]

NARRATIVE: CASE EVENT DATE: 20180611
